FAERS Safety Report 17148784 (Version 1)
Quarter: 2019Q4

REPORT INFORMATION
  Report Type: Spontaneous
  Country: PL (occurrence: PL)
  Receive Date: 20191213
  Receipt Date: 20191213
  Transmission Date: 20200122
  Serious: Yes (Death)
  Sender: FDA-Public Use
  Company Number: PL-TEVA-763198ISR

PATIENT

DRUGS (1)
  1. COPAXONE [Suspect]
     Active Substance: GLATIRAMER ACETATE
     Route: 064
     Dates: start: 20160413, end: 20170206

REACTIONS (2)
  - Foetal exposure during pregnancy [Unknown]
  - Small for dates baby [Fatal]
